FAERS Safety Report 9563885 (Version 4)
Quarter: 2013Q4

REPORT INFORMATION
  Report Type: Report from Study
  Country: GB (occurrence: GB)
  Receive Date: 20130927
  Receipt Date: 20131210
  Transmission Date: 20140711
  Serious: Yes (Hospitalization)
  Sender: FDA-Public Use
  Company Number: GB-ROCHE-1278717

PATIENT
  Age: 57 Year
  Sex: Female

DRUGS (7)
  1. PERTUZUMAB [Suspect]
     Indication: BREAST CANCER
     Route: 042
     Dates: start: 20130905
  2. PERTUZUMAB [Suspect]
     Route: 042
  3. TRASTUZUMAB [Suspect]
     Indication: BREAST CANCER
     Route: 042
     Dates: start: 20130906
  4. TRASTUZUMAB [Suspect]
     Route: 042
  5. DOCETAXEL [Suspect]
     Indication: BREAST CANCER
     Route: 065
     Dates: start: 20130906
  6. CITALOPRAM [Concomitant]
     Route: 065
     Dates: start: 201303
  7. TRAMADOL [Concomitant]
     Route: 065
     Dates: start: 201211

REACTIONS (1)
  - Neutropenic sepsis [Recovered/Resolved]
